FAERS Safety Report 8307545-2 (Version None)
Quarter: 2012Q2

REPORT INFORMATION
  Report Type: 
  Country: None (occurrence: None)
  Receive Date: 20120424
  Receipt Date: 20120413
  Transmission Date: 20120825
  Serious: No
  Sender: FDA-Public Use
  Company Number: BR-GENZYME-POMP-1002154

PATIENT
  Sex: Female
  Weight: 73 kg

DRUGS (3)
  1. LEVOCETIRIZINE DIHYDROCHLORIDE [Concomitant]
     Indication: PREMEDICATION
     Dosage: 10 MG, 2X/W
     Dates: start: 20110730
  2. MYOZYME [Suspect]
     Indication: GLYCOGEN STORAGE DISEASE TYPE II
     Dosage: 10 MG/KG, QW
     Route: 042
     Dates: start: 20070807
  3. PREDNISONE TAB [Concomitant]
     Indication: PREMEDICATION
     Dosage: 20 MG, 2X/W
     Dates: start: 20110730

REACTIONS (2)
  - URINARY TRACT INFECTION [None]
  - CYSTITIS HAEMORRHAGIC [None]
